FAERS Safety Report 17010408 (Version 2)
Quarter: 2020Q1

REPORT INFORMATION
  Report Type: Spontaneous
  Country: US (occurrence: US)
  Receive Date: 20191108
  Receipt Date: 20200106
  Transmission Date: 20200409
  Serious: Yes (Other)
  Sender: FDA-Public Use
  Company Number: US-OTSUKA-2018_022308

PATIENT
  Sex: Female

DRUGS (5)
  1. ABILIFY [Suspect]
     Active Substance: ARIPIPRAZOLE
     Indication: PARANOIA
  2. ABILIFY [Suspect]
     Active Substance: ARIPIPRAZOLE
     Indication: SOCIAL ANXIETY DISORDER
  3. ABILIFY [Suspect]
     Active Substance: ARIPIPRAZOLE
     Indication: PSYCHOTIC DISORDER
  4. ZOLPIDEM [Concomitant]
     Active Substance: ZOLPIDEM TARTRATE
     Indication: PRODUCT USED FOR UNKNOWN INDICATION
     Dosage: 10 MG, QD (AT BEDTIME)
     Route: 065
  5. ABILIFY [Suspect]
     Active Substance: ARIPIPRAZOLE
     Indication: MAJOR DEPRESSION
     Dosage: 10 MG, QD
     Route: 065
     Dates: start: 201006, end: 201606

REACTIONS (45)
  - Emotional distress [Unknown]
  - Feeling abnormal [Unknown]
  - Chest discomfort [Unknown]
  - Panic attack [Unknown]
  - Product use in unapproved indication [Unknown]
  - Insurance issue [Unknown]
  - Decreased interest [Unknown]
  - Bipolar II disorder [Unknown]
  - Cough [Unknown]
  - Anger [Unknown]
  - Fall [Unknown]
  - Asthenia [Unknown]
  - Constipation [Unknown]
  - Affective disorder [Unknown]
  - Self esteem decreased [Unknown]
  - Neuropsychiatric symptoms [Unknown]
  - Apathy [Unknown]
  - Blood alkaline phosphatase increased [Unknown]
  - Back pain [Unknown]
  - Obsessive-compulsive disorder [Unknown]
  - Irritability [Not Recovered/Not Resolved]
  - Insomnia [Recovered/Resolved]
  - Gambling disorder [Recovered/Resolved]
  - Marital problem [Unknown]
  - Dyspnoea [Unknown]
  - Somnolence [Unknown]
  - Economic problem [Unknown]
  - Loss of consciousness [Unknown]
  - Post-traumatic stress disorder [Unknown]
  - Arthralgia [Unknown]
  - Hyperglycaemia [Unknown]
  - Suicidal ideation [Unknown]
  - Helplessness [Unknown]
  - Injury [Unknown]
  - Obesity [Unknown]
  - Pain [Recovering/Resolving]
  - Joint injury [Unknown]
  - Crying [Unknown]
  - Joint instability [Unknown]
  - Sciatica [Unknown]
  - Vitamin D deficiency [Unknown]
  - Otitis media [Unknown]
  - Neck pain [Unknown]
  - Diarrhoea [Unknown]
  - Threat of redundancy [Unknown]

NARRATIVE: CASE EVENT DATE: 201403
